FAERS Safety Report 20586248 (Version 1)
Quarter: 2022Q1

REPORT INFORMATION
  Report Type: Spontaneous
  Country: CN (occurrence: None)
  Receive Date: 20220313
  Receipt Date: 20220313
  Transmission Date: 20220423
  Serious: Yes (Other)
  Sender: FDA-Public Use
  Company Number: CN-ROCHE-3040637

PATIENT
  Age: 54 Year
  Sex: Female

DRUGS (14)
  1. BEVACIZUMAB [Suspect]
     Active Substance: BEVACIZUMAB
     Indication: Colon cancer
     Dosage: DAY1 OF EVERY CYCLE, 6 CYCLE
     Route: 041
     Dates: start: 20171129, end: 20180426
  2. LEUCOVORIN CALCIUM [Concomitant]
     Active Substance: LEUCOVORIN CALCIUM
     Indication: Colon cancer
     Dates: start: 2017
  3. LEUCOVORIN CALCIUM [Concomitant]
     Active Substance: LEUCOVORIN CALCIUM
     Dosage: FOLFOX4, DAY1 AND DAY 2 OF EVERY CYCLE, 14 DAYS AS A CYCLE
     Dates: start: 20170725
  4. LEUCOVORIN CALCIUM [Concomitant]
     Active Substance: LEUCOVORIN CALCIUM
     Dosage: DAY1 OF EVERY CYCLE
     Route: 041
     Dates: start: 20171129, end: 20180426
  5. TEGAFUR [Concomitant]
     Active Substance: TEGAFUR
     Indication: Colon cancer
     Dates: start: 2017
  6. OXALIPLATIN [Concomitant]
     Active Substance: OXALIPLATIN
     Indication: Colon cancer
     Dates: start: 2017
  7. OXALIPLATIN [Concomitant]
     Active Substance: OXALIPLATIN
     Dosage: FOLFOX4, DAY1 OF EVERY CYCLE,14 DAYS AS A CYCLE
     Dates: start: 20170725
  8. FLUOROURACIL [Concomitant]
     Active Substance: FLUOROURACIL
     Indication: Colon cancer
     Dosage: FOLFOX4, 14 DAYS AS A CYCLE (0.63G DAY1-2, 1.9G 46HOURS)
     Dates: start: 20170725
  9. FLUOROURACIL [Concomitant]
     Active Substance: FLUOROURACIL
     Dosage: 0.6 G INTRAVENOUS DRIP + 3.6 G CONTINUOUS INTRAVENOUS DRIP FOR 48 HOURS
     Route: 041
     Dates: start: 20171129, end: 20180426
  10. CISPLATIN [Concomitant]
     Active Substance: CISPLATIN
     Indication: Colon cancer
     Dosage: HYPERTHERMIC INTRAPERITONEAL PERFUSION
     Dates: start: 2017
  11. CISPLATIN [Concomitant]
     Active Substance: CISPLATIN
     Dosage: DAY1 OF 4TH,5TH,6TH CYCLE
     Dates: start: 20180224
  12. DOCETAXEL [Concomitant]
     Active Substance: DOCETAXEL
     Indication: Colon cancer
     Dosage: HYPERTHERMIC INTRAPERITONEAL PERFUSION
     Dates: start: 2017
  13. DOCETAXEL [Concomitant]
     Active Substance: DOCETAXEL
     Dosage: DAY1 OF 4TH,5TH,6TH CYCLE
     Dates: start: 20180224
  14. IRINOTECAN [Concomitant]
     Active Substance: IRINOTECAN
     Indication: Colon cancer
     Dosage: HYPERTHERMIC INTRAPERITONEAL PERFUSION, DAY1 OF EVERY CYCLE
     Route: 041
     Dates: start: 20171129, end: 20180426

REACTIONS (2)
  - Intestinal obstruction [Unknown]
  - Muscular weakness [Recovering/Resolving]
